FAERS Safety Report 9828030 (Version 1)
Quarter: 2013Q4

REPORT INFORMATION
  Report Type: Spontaneous
  Country: US (occurrence: None)
  Receive Date: 20131120
  Receipt Date: 20131120
  Transmission Date: 20140711
  Serious: Yes (Hospitalization)
  Sender: FDA-Public Use
  Company Number: 1865348

PATIENT
  Age: 61 Year
  Sex: Female
  Weight: 78.18 kg

DRUGS (6)
  1. DOCETAXEL [Suspect]
     Indication: BREAST DISORDER
     Route: 042
     Dates: start: 20130403, end: 20130605
  2. CYCLOPHOSPHAMIDE [Concomitant]
  3. ALOXI [Concomitant]
  4. DECADRON [Concomitant]
  5. EMEND [Concomitant]
  6. NEULASTA [Concomitant]

REACTIONS (5)
  - White blood cell count decreased [None]
  - Diarrhoea [None]
  - Colitis [None]
  - Neutropenia [None]
  - Pyrexia [None]
